FAERS Safety Report 7419919-2 (Version None)
Quarter: 2011Q2

REPORT INFORMATION
  Report Type: 
  Country: None (occurrence: None)
  Receive Date: 20110418
  Receipt Date: 20110408
  Transmission Date: 20111010
  Serious: Yes (Hospitalization)
  Sender: FDA-Public Use
  Company Number: US-BIOGENIDEC-2009BI023730

PATIENT
  Age: 48 Year
  Sex: Female
  Weight: 63 kg

DRUGS (14)
  1. TYSABRI [Suspect]
     Indication: MULTIPLE SCLEROSIS
     Route: 042
     Dates: start: 20080417, end: 20100108
  2. PROVIGIL [Concomitant]
     Route: 048
  3. ZANAFLEX [Concomitant]
     Route: 048
  4. ALPRAZOLAM [Concomitant]
     Route: 048
  5. HYDROCODONE BITARTRATE [Concomitant]
     Route: 048
  6. RANITIDINE [Concomitant]
     Route: 048
  7. ACETAMINOPHEN [Concomitant]
  8. TRAMDOL [Concomitant]
     Route: 048
  9. NORTRIPTYLINE HCL [Concomitant]
     Route: 048
  10. MULTI-VITAMIN [Concomitant]
     Route: 048
  11. TYSABRI [Suspect]
     Route: 042
     Dates: start: 20110209
  12. SERTRALINE [Concomitant]
     Route: 048
  13. BACLOFEN [Concomitant]
     Route: 048
  14. AMBIEN [Concomitant]
     Route: 048

REACTIONS (13)
  - TENDINOUS CONTRACTURE [None]
  - MUSCLE SPASMS [None]
  - PHARYNGEAL OEDEMA [None]
  - DYSSTASIA [None]
  - PALATAL OEDEMA [None]
  - JOINT DISLOCATION [None]
  - MIGRAINE WITHOUT AURA [None]
  - DEPRESSION [None]
  - DEEP VEIN THROMBOSIS [None]
  - PULMONARY EMBOLISM [None]
  - URINARY TRACT INFECTION [None]
  - ANKLE FRACTURE [None]
  - PNEUMONIA [None]
